FAERS Safety Report 6456698-X (Version None)
Quarter: 2009Q4

REPORT INFORMATION
  Report Type: 
  Country: None (occurrence: None)
  Receive Date: 20091125
  Receipt Date: 20090602
  Transmission Date: 20100525
  Serious: Yes (Life-Threatening)
  Sender: FDA-Public Use
  Company Number: JP-ASTRAZENECA-2009AP01988

PATIENT
  Age: 82 Year
  Sex: Male
  Weight: 53 kg

DRUGS (10)
  1. TENORMIN [Suspect]
     Indication: HYPERTENSION
     Route: 048
     Dates: start: 20051205, end: 20061001
  2. TENORMIN [Interacting]
     Route: 048
     Dates: start: 20061002
  3. BLOPRESS [Interacting]
     Indication: HYPERTENSION
     Route: 048
     Dates: start: 20051227
  4. AMLODIPINE [Interacting]
     Indication: HYPERTENSION
     Dosage: 1 T (5 MG) EACH AFTER BREAKFAST AND AT BEDTIME FROM 20-AUG-2007
     Route: 048
     Dates: start: 20070319
  5. ASPIRIN [Concomitant]
     Route: 048
     Dates: start: 20020723
  6. CLARITH [Concomitant]
     Route: 048
     Dates: start: 20061030
  7. LEVOTHYROXINE SODIUM [Concomitant]
     Indication: THYROID CANCER
     Route: 048
     Dates: start: 20061127
  8. DEPAS [Concomitant]
     Route: 048
     Dates: start: 20070115
  9. SEREVENT [Concomitant]
     Route: 055
     Dates: start: 20070219
  10. OMEPRAL TABLETS [Concomitant]
     Route: 048
     Dates: start: 20071210

REACTIONS (6)
  - ATRIAL FIBRILLATION [None]
  - BRADYCARDIA [None]
  - DRUG INTERACTION [None]
  - HYPERKALAEMIA [None]
  - RENAL FAILURE ACUTE [None]
  - SHOCK [None]
